FAERS Safety Report 4370739-5 (Version None)
Quarter: 2004Q2

REPORT INFORMATION
  Report Type: 
  Country: None (occurrence: None)
  Receive Date: 20040604
  Receipt Date: 20040322
  Transmission Date: 20050107
  Serious: Yes (Hospitalization, Disabling)
  Sender: FDA-Public Use
  Company Number: FR-BRISTOL-MYERS SQUIBB COMPANY-12564126

PATIENT
  Age: 72 Year
  Sex: Male

DRUGS (4)
  1. HYDREA [Suspect]
     Indication: THROMBOCYTHAEMIA
     Dosage: DECREASED TO 1000 MG ON UNEVEN DAYS AND 500 MG ON EVEN DAYS IN JUL-2003
     Route: 048
     Dates: start: 19940801
  2. HYPERIUM [Concomitant]
     Indication: HYPERTENSION
     Dates: start: 20020101
  3. LODOZ [Concomitant]
     Indication: HYPERTENSION
     Dates: start: 20010101
  4. ALLOPURINOL [Concomitant]
     Indication: GOUT
     Dates: start: 20010101

REACTIONS (2)
  - OSTEONECROSIS [None]
  - SKIN ULCER [None]
